FAERS Safety Report 24311375 (Version 4)
Quarter: 2024Q4

REPORT INFORMATION
  Report Type: Spontaneous
  Country: FR (occurrence: FR)
  Receive Date: 20240912
  Receipt Date: 20241009
  Transmission Date: 20250114
  Serious: Yes (Other)
  Sender: MERZ
  Company Number: FR-MRZWEB-2024090000031

PATIENT

DRUGS (9)
  1. XEOMIN [Suspect]
     Active Substance: INCOBOTULINUMTOXINA
     Indication: Torticollis
     Dosage: 160 025
     Route: 030
     Dates: start: 20240812, end: 20240812
  2. XEOMIN [Suspect]
     Active Substance: INCOBOTULINUMTOXINA
     Dosage: 160 025
     Route: 030
     Dates: start: 20240812, end: 20240812
  3. BOTULINUM TOXIN TYPE A [Concomitant]
     Active Substance: BOTULINUM TOXIN TYPE A
     Indication: Neuromuscular blocking therapy
     Dosage: 90 025
     Route: 030
     Dates: start: 20240415, end: 20240415
  4. BOTULINUM TOXIN TYPE A [Concomitant]
     Active Substance: BOTULINUM TOXIN TYPE A
     Indication: Neuromuscular blocking therapy
  5. BOTULINUM TOXIN TYPE A [Concomitant]
     Active Substance: BOTULINUM TOXIN TYPE A
     Indication: Neuromuscular blocking therapy
  6. BOTULINUM TOXIN TYPE A [Concomitant]
     Active Substance: BOTULINUM TOXIN TYPE A
     Indication: Neuromuscular blocking therapy
  7. SPIRIVA [Concomitant]
     Active Substance: TIOTROPIUM BROMIDE MONOHYDRATE
     Dates: start: 2010
  8. SYMBICORT [Concomitant]
     Active Substance: BUDESONIDE\FORMOTEROL FUMARATE DIHYDRATE
     Dates: start: 2010
  9. DILTIAZEM [Concomitant]
     Active Substance: DILTIAZEM
     Dates: start: 2010

REACTIONS (3)
  - Pneumonia aspiration [Recovered/Resolved]
  - Dysphagia [Recovering/Resolving]
  - Overdose [Unknown]

NARRATIVE: CASE EVENT DATE: 20240812
